FAERS Safety Report 15929363 (Version 2)
Quarter: 2019Q1

REPORT INFORMATION
  Report Type: Spontaneous
  Country: US (occurrence: US)
  Receive Date: 20190206
  Receipt Date: 20190221
  Transmission Date: 20190417
  Serious: No
  Sender: FDA-Public Use
  Company Number: US-PFIZER INC-2019056229

PATIENT
  Age: 82 Year
  Sex: Female

DRUGS (1)
  1. IBRANCE [Suspect]
     Active Substance: PALBOCICLIB
     Dosage: 100 MG, CYCLIC, [DAILY ON DAYS 1-21, FOLLOWED BY 7 DAYS OFF]
     Route: 048
     Dates: start: 20180330, end: 20181226

REACTIONS (1)
  - Adverse event [Not Recovered/Not Resolved]
